FAERS Safety Report 12728798 (Version 1)
Quarter: 2016Q3

REPORT INFORMATION
  Report Type: Spontaneous
  Country: US (occurrence: US)
  Receive Date: 20160909
  Receipt Date: 20160909
  Transmission Date: 20161109
  Serious: No
  Sender: FDA-Public Use
  Company Number: US-TORRENT-00001253

PATIENT
  Age: 51 Year
  Sex: Male

DRUGS (1)
  1. ZOLPIDEM TARTRATE TABLET [Suspect]
     Active Substance: ZOLPIDEM TARTRATE
     Indication: INSOMNIA
     Dosage: ONE NIGHTLY
     Route: 048
     Dates: start: 20160720

REACTIONS (5)
  - Agitation [Unknown]
  - Drug ineffective [Unknown]
  - Abnormal behaviour [Unknown]
  - Aggression [Unknown]
  - Palpitations [Unknown]
